FAERS Safety Report 19443843 (Version 2)
Quarter: 2021Q3

REPORT INFORMATION
  Report Type: Report from Study
  Country: CO (occurrence: CO)
  Receive Date: 20210621
  Receipt Date: 20210702
  Transmission Date: 20211014
  Serious: Yes (Disabling, Other)
  Sender: FDA-Public Use
  Company Number: CO-TAKEDA-2021TUS037194

PATIENT
  Sex: Male
  Weight: 70 kg

DRUGS (6)
  1. HUMAN NORMAL IMMUNOGLOBULIN [Suspect]
     Active Substance: HUMAN IMMUNOGLOBULIN G
     Indication: PRIMARY IMMUNODEFICIENCY SYNDROME
     Dosage: 30 GRAM, MONTHLY
     Route: 058
  2. HUMAN NORMAL IMMUNOGLOBULIN [Suspect]
     Active Substance: HUMAN IMMUNOGLOBULIN G
     Dosage: UNK
     Route: 065
  3. ALLEGRA [Concomitant]
     Active Substance: FEXOFENADINE HYDROCHLORIDE
     Dosage: Q
  4. HUMAN NORMAL IMMUNOGLOBULIN [Suspect]
     Active Substance: HUMAN IMMUNOGLOBULIN G
     Indication: HYPOGAMMAGLOBULINAEMIA
     Dosage: 30 GRAM,MONTHLY
     Route: 058
     Dates: start: 20210201
  5. IBUPROFEN. [Concomitant]
     Active Substance: IBUPROFEN
     Dosage: UNK UNK, TID
  6. FEXOFENADINE [Concomitant]
     Active Substance: FEXOFENADINE HYDROCHLORIDE
     Dosage: 120 MILLIGRAM, PRN
     Route: 065

REACTIONS (21)
  - Myalgia [Not Recovered/Not Resolved]
  - Diarrhoea [Unknown]
  - Fear of disease [Not Recovered/Not Resolved]
  - Inappropriate schedule of product administration [Not Recovered/Not Resolved]
  - Chronic sinusitis [Recovering/Resolving]
  - Pain [Recovering/Resolving]
  - Non-Hodgkin^s lymphoma [Unknown]
  - Fatigue [Not Recovered/Not Resolved]
  - Product availability issue [Unknown]
  - Deafness bilateral [Not Recovered/Not Resolved]
  - Inflammation [Recovering/Resolving]
  - Otitis media chronic [Unknown]
  - Oral discomfort [Unknown]
  - Condition aggravated [Not Recovered/Not Resolved]
  - Carpal tunnel syndrome [Unknown]
  - Bronchiectasis [Unknown]
  - General physical health deterioration [Not Recovered/Not Resolved]
  - Synovial cyst [Unknown]
  - Hepatic steatosis [Unknown]
  - Herpes zoster [Unknown]
  - Rhinorrhoea [Unknown]
